FAERS Safety Report 6033362-2 (Version None)
Quarter: 2009Q1

REPORT INFORMATION
  Report Type: 
  Country: None (occurrence: None)
  Receive Date: 20090109
  Receipt Date: 20081231
  Transmission Date: 20090719
  Serious: Yes (Hospitalization)
  Sender: FDA-Public Use
  Company Number: US-ELI_LILLY_AND_COMPANY-US200812003954

PATIENT
  Sex: Female
  Weight: 58.957 kg

DRUGS (4)
  1. ZYPREXA [Suspect]
     Indication: DEMENTIA
     Dosage: 20 MG, EACH EVENING
     Dates: start: 20081205, end: 20081205
  2. LEVOTHYROXINE SODIUM [Concomitant]
     Dosage: 100 UG, UNK
  3. ARICEPT [Concomitant]
     Dosage: 100 MG, UNK
  4. FERROUS SULFATE TAB [Concomitant]
     Dosage: UNK, UNK

REACTIONS (6)
  - ATRIAL FIBRILLATION [None]
  - BLOOD CREATINE PHOSPHOKINASE INCREASED [None]
  - BLOOD GLUCOSE INCREASED [None]
  - HAEMOGLOBIN DECREASED [None]
  - HYPOTHERMIA [None]
  - WHITE BLOOD CELL COUNT INCREASED [None]
